FAERS Safety Report 5688832-3 (Version None)
Quarter: 2008Q1

REPORT INFORMATION
  Report Type: 
  Country: None (occurrence: None)
  Receive Date: 20080331
  Receipt Date: 20020514
  Transmission Date: 20080703
  Serious: Yes (Death)
  Sender: FDA-Public Use
  Company Number: DE-ROCHE-313222

PATIENT
  Age: 38 Year
  Sex: Male
  Weight: 127 kg

DRUGS (2)
  1. XENICAL [Suspect]
     Indication: OBESITY
     Route: 048
     Dates: start: 20020207, end: 20020502
  2. VIANI [Concomitant]
     Route: 055

REACTIONS (1)
  - DEATH [None]
